APPROVED DRUG PRODUCT: NUTRESTORE
Active Ingredient: L-GLUTAMINE
Strength: 5GM/PACKET
Dosage Form/Route: FOR SOLUTION;ORAL
Application: N021667 | Product #001
Applicant: EMMAUS MEDICAL INC
Approved: Jun 10, 2004 | RLD: Yes | RS: No | Type: DISCN